FAERS Safety Report 13374427 (Version 8)
Quarter: 2022Q2

REPORT INFORMATION
  Report Type: Report from Study
  Country: IL (occurrence: IL)
  Receive Date: 20170327
  Receipt Date: 20220425
  Transmission Date: 20220721
  Serious: Yes (Other)
  Sender: FDA-Public Use
  Company Number: IL-PFIZER INC-2017124585

PATIENT
  Age: 34 Year
  Sex: Male
  Weight: 80 kg

DRUGS (2)
  1. ELELYSO [Suspect]
     Active Substance: TALIGLUCERASE ALFA
     Indication: Gaucher^s disease
     Dosage: 15 IU/KG, EVERY 2 WEEKS
     Route: 042
     Dates: start: 20170305, end: 20170305
  2. ELELYSO [Suspect]
     Active Substance: TALIGLUCERASE ALFA
     Dosage: 15 IU/KG, EVERY 2 WEEKS
     Route: 042
     Dates: start: 20170319, end: 20170319

REACTIONS (3)
  - Chest pain [Recovered/Resolved]
  - Dyspnoea [Recovered/Resolved]
  - Back pain [Recovered/Resolved]

NARRATIVE: CASE EVENT DATE: 20170319
